FAERS Safety Report 4613446-3 (Version None)
Quarter: 2005Q1

REPORT INFORMATION
  Report Type: 
  Country: None (occurrence: None)
  Receive Date: 20050317
  Receipt Date: 20050317
  Transmission Date: 20050727
  Serious: Yes (Hospitalization)
  Sender: FDA-Public Use
  Company Number: None

PATIENT
  Age: 67 Year
  Sex: Male

DRUGS (31)
  1. RISPERDAL [Suspect]
     Indication: PSYCHOTIC DISORDER
     Dosage: 1 MG PER PEG TUBE DAILY
     Dates: start: 20041121
  2. TRAZODONE HCL [Suspect]
     Indication: DEPRESSION
     Dosage: 50 MG PER PEG TUBE QHS
     Dates: start: 20041121
  3. FLUCONAZOLE IN DEXTROSE 5% [Suspect]
     Indication: FUNGAL INFECTION
     Dosage: 200 MG IVPB Q24 H
     Route: 042
     Dates: start: 20041121
  4. METOCLOPRAMIDE [Suspect]
     Indication: GASTROINTESTINAL DISORDER
     Dosage: 2.5 MG PER PEG TUBE TID
     Dates: start: 20041121
  5. METOCLOPRAMIDE [Suspect]
     Indication: NAUSEA
     Dosage: 2.5 MG PER PEG TUBE TID
     Dates: start: 20041121
  6. METOCLOPRAMIDE [Suspect]
     Indication: VOMITING
     Dosage: 2.5 MG PER PEG TUBE TID
     Dates: start: 20041121
  7. ONDANSETRON 2 MG/ML [Concomitant]
     Indication: NAUSEA
     Dosage: 2 MG IV Q  6H PRN N/V
     Route: 042
     Dates: start: 20041124
  8. CLOTRIMAZOLE [Suspect]
     Indication: ANTIFUNGAL PROPHYLAXIS
     Dosage: 10 MG PO TID
     Route: 048
     Dates: start: 20041121
  9. DOPAMINE HCL AND DEXTROSE 5% [Suspect]
     Indication: BLOOD PRESSURE
     Dosage: TITRATED TO BLOOD PRESSURE
     Dates: start: 20041121
  10. NS FLUSH [Concomitant]
  11. CACTINEX [Concomitant]
  12. NYSTATIN TOPICAL POWDER [Concomitant]
  13. VIT C [Concomitant]
  14. BACLOFEN [Concomitant]
  15. REMERON [Concomitant]
  16. NYSTATIN [Concomitant]
  17. PHENERGAN [Concomitant]
  18. ALBUTEROL NEBULIZED [Concomitant]
  19. ATROVENT [Concomitant]
  20. TPN [Concomitant]
  21. ATIVAN [Concomitant]
  22. VANCOMYCIN [Concomitant]
  23. AMIODARONE [Concomitant]
  24. FENTANYL PCA [Concomitant]
  25. PRIMAXIN [Concomitant]
  26. DEPACON [Concomitant]
  27. LIPIDS [Concomitant]
  28. CETACAINE [Concomitant]
  29. MORPHINE [Concomitant]
  30. TYLENOL (CAPLET) [Concomitant]
  31. LACTATED RINGER'S [Concomitant]

REACTIONS (2)
  - ELECTROCARDIOGRAM QT PROLONGED [None]
  - VENTRICULAR TACHYCARDIA [None]
